FAERS Safety Report 12603699 (Version 2)
Quarter: 2019Q1

REPORT INFORMATION
  Report Type: Spontaneous
  Country: SE (occurrence: SE)
  Receive Date: 20160728
  Receipt Date: 20190214
  Transmission Date: 20190417
  Serious: Yes (Life-Threatening, Hospitalization, Other)
  Sender: FDA-Public Use
  Company Number: SE-JNJFOC-20160713748

PATIENT
  Sex: Male

DRUGS (4)
  1. REMICADE [Suspect]
     Active Substance: INFLIXIMAB
     Indication: PSORIATIC ARTHROPATHY
     Route: 042
     Dates: start: 2006
  2. REMICADE [Suspect]
     Active Substance: INFLIXIMAB
     Indication: REITER^S SYNDROME
     Route: 042
     Dates: start: 2006
  3. INFLECTRA [Suspect]
     Active Substance: INFLIXIMAB-DYYB
     Indication: REITER^S SYNDROME
     Route: 065
     Dates: start: 20160518, end: 20160518
  4. INFLECTRA [Suspect]
     Active Substance: INFLIXIMAB-DYYB
     Indication: PSORIATIC ARTHROPATHY
     Route: 065
     Dates: start: 20160518, end: 20160518

REACTIONS (27)
  - Monoplegia [Not Recovered/Not Resolved]
  - Nail disorder [Unknown]
  - Dysstasia [Unknown]
  - Cardiac disorder [Unknown]
  - Paralysis [Not Recovered/Not Resolved]
  - Product use in unapproved indication [Unknown]
  - Joint swelling [Unknown]
  - Loss of personal independence in daily activities [Not Recovered/Not Resolved]
  - Cyanosis [Unknown]
  - Chest discomfort [Not Recovered/Not Resolved]
  - Spinal column stenosis [Unknown]
  - Respiratory disorder [Unknown]
  - Night sweats [Unknown]
  - Fall [Unknown]
  - Skin haemorrhage [Unknown]
  - Hyperhidrosis [Unknown]
  - Feeling hot [Unknown]
  - Headache [Not Recovered/Not Resolved]
  - Feeling abnormal [Unknown]
  - Thrombosis [Unknown]
  - Gait disturbance [Unknown]
  - Oedema peripheral [Unknown]
  - Hypoaesthesia [Unknown]
  - Contusion [Unknown]
  - Dyspnoea [Unknown]
  - Fatigue [Unknown]
  - Off label use [Unknown]

NARRATIVE: CASE EVENT DATE: 201605
